FAERS Safety Report 25040544 (Version 1)
Quarter: 2025Q1

REPORT INFORMATION
  Report Type: Spontaneous
  Country: US (occurrence: None)
  Receive Date: 20250304
  Receipt Date: 20250304
  Transmission Date: 20250409
  Serious: Yes (Hospitalization)
  Sender: FDA-CTU
  Company Number: None

PATIENT
  Age: 75 Year
  Sex: Female

DRUGS (17)
  1. ADEMPAS [Suspect]
     Active Substance: RIOCIGUAT
     Indication: Heritable pulmonary arterial hypertension
     Dosage: 2.5MG TID ORAL
     Route: 048
     Dates: start: 20180413
  2. ADEMPAS [Suspect]
     Active Substance: RIOCIGUAT
     Indication: Pulmonary arterial hypertension
  3. AMBRISENTAN [Suspect]
     Active Substance: AMBRISENTAN
  4. TREPROSTINIL [Concomitant]
     Active Substance: TREPROSTINIL
  5. SERTRALINE [Concomitant]
     Active Substance: SERTRALINE HYDROCHLORIDE
  6. WINREVAIR [Concomitant]
     Active Substance: SOTATERCEPT-CSRK
  7. FOSAMAX [Concomitant]
     Active Substance: ALENDRONATE SODIUM
  8. PRADAXA [Concomitant]
     Active Substance: DABIGATRAN ETEXILATE MESYLATE
  9. AMBRISENTAN [Concomitant]
     Active Substance: AMBRISENTAN
  10. PANTOPRAZOLE [Concomitant]
     Active Substance: PANTOPRAZOLE
  11. FUROSEMIDE [Concomitant]
     Active Substance: FUROSEMIDE
  12. POTASSIUM CHLORIDE [Concomitant]
     Active Substance: POTASSIUM CHLORIDE
  13. FLONASE [Concomitant]
     Active Substance: FLUTICASONE PROPIONATE
  14. VITAMIN B12 [Concomitant]
     Active Substance: CYANOCOBALAMIN
  15. Oxyzen Supplemental [Concomitant]
  16. Calcium arbonate-vit D3 [Concomitant]
  17. PRADAXA [Suspect]
     Active Substance: DABIGATRAN ETEXILATE MESYLATE

REACTIONS (3)
  - Hiatus hernia [None]
  - Oesophageal ulcer [None]
  - Melaena [None]

NARRATIVE: CASE EVENT DATE: 20250207
